FAERS Safety Report 24346698 (Version 1)
Quarter: 2024Q3

REPORT INFORMATION
  Report Type: Spontaneous
  Country: GB (occurrence: GB)
  Receive Date: 20240921
  Receipt Date: 20240921
  Transmission Date: 20241017
  Serious: Yes (Disabling)
  Sender: TEVA
  Company Number: GB-MHRA-TPP10447787C14178791YC1726067773497

PATIENT
  Age: 76 Year
  Sex: Female
  Weight: 64 kg

DRUGS (3)
  1. DOCETAXEL [Suspect]
     Active Substance: DOCETAXEL\DOCETAXEL ANHYDROUS
     Indication: Product used for unknown indication
     Dosage: 20MG/0.72ML SOLUTION FOR INFUSION VIALS AND DILUENT
     Route: 065
     Dates: start: 20240827
  2. LEVOTHYROXINE [Concomitant]
     Active Substance: LEVOTHYROXINE\LEVOTHYROXINE SODIUM
     Indication: Product used for unknown indication
     Dosage: EACH MORNING
     Route: 065
     Dates: start: 20240603
  3. EPIPEN [Concomitant]
     Active Substance: EPINEPHRINE
     Indication: Product used for unknown indication
     Dosage: USE IF SYMPTOMS OF ANAPHYLAXIS DEVELOP AND CALL...
     Route: 065
     Dates: start: 20240906

REACTIONS (1)
  - Hypersensitivity [Recovered/Resolved]
